FAERS Safety Report 22358426 (Version 2)
Quarter: 2024Q2

REPORT INFORMATION
  Report Type: Other
  Country: IN (occurrence: None)
  Receive Date: 20230524
  Receipt Date: 20240507
  Transmission Date: 20240716
  Serious: Yes (Other)
  Sender: FDA-Public Use
  Company Number: IN-ROCHE-3277821

PATIENT
  Sex: Female

DRUGS (1)
  1. PHESGO [Suspect]
     Active Substance: HYALURONIDASE-ZZXF\PERTUZUMAB\TRASTUZUMAB
     Indication: Breast cancer
     Dosage: PATIENT^S 15TH CYCLE OF PHESGO WAS SCHEDULED BY THE PHYSICIAN FOR THE 22ND DAY INSTEAD OF THE 21-DAY
     Route: 058
     Dates: start: 20220607

REACTIONS (5)
  - Cough [Unknown]
  - Nasopharyngitis [Unknown]
  - Off label use [Unknown]
  - Headache [Unknown]
  - Syncope [Unknown]
